FAERS Safety Report 6779130-5 (Version None)
Quarter: 2010Q2

REPORT INFORMATION
  Report Type: 
  Country: None (occurrence: None)
  Receive Date: 20100618
  Receipt Date: 20100615
  Transmission Date: 20101027
  Serious: Yes (Death, Hospitalization)
  Sender: FDA-Public Use
  Company Number: US-BRISTOL-MYERS SQUIBB COMPANY-14391916

PATIENT
  Age: 75 Year
  Sex: Male
  Weight: 80 kg

DRUGS (4)
  1. ERBITUX [Suspect]
     Indication: COLON CANCER
     Dosage: 400MG/M2. 09APR08
     Route: 042
     Dates: start: 20071212, end: 20080423
  2. ELOXATIN [Suspect]
     Indication: COLON CANCER
     Dosage: 09APR08
     Route: 042
     Dates: start: 20071212, end: 20080423
  3. FLUOROURACIL [Suspect]
     Indication: COLON CANCER
     Dosage: 09APR08
     Route: 042
     Dates: start: 20071212, end: 20080423
  4. LEUCOVORIN CALCIUM [Suspect]
     Indication: COLON CANCER
     Dosage: 09APR08
     Route: 042
     Dates: start: 20071212, end: 20080423

REACTIONS (3)
  - HYPOXIA [None]
  - PNEUMONIA [None]
  - PULMONARY FIBROSIS [None]
